FAERS Safety Report 21545182 (Version 1)
Quarter: 2022Q4

REPORT INFORMATION
  Report Type: Report from Study
  Country: US (occurrence: US)
  Receive Date: 20221103
  Receipt Date: 20221103
  Transmission Date: 20230113
  Serious: Yes (Hospitalization, Other)
  Sender: FDA-Public Use
  Company Number: US-ABBVIE-4185787

PATIENT
  Sex: Male

DRUGS (1)
  1. IMBRUVICA [Suspect]
     Active Substance: IBRUTINIB
     Indication: B-cell small lymphocytic lymphoma
     Route: 048
     Dates: start: 202107

REACTIONS (5)
  - Cardiac failure congestive [Unknown]
  - Contusion [Unknown]
  - Fatigue [Unknown]
  - Arterial occlusive disease [Unknown]
  - Neoplasm malignant [Unknown]
